FAERS Safety Report 7072687-9 (Version None)
Quarter: 2010Q4

REPORT INFORMATION
  Report Type: 
  Country: None (occurrence: None)
  Receive Date: 20101029
  Receipt Date: 20100301
  Transmission Date: 20110411
  Serious: No
  Sender: FDA-Public Use
  Company Number: A0847365A

PATIENT

DRUGS (1)
  1. ADVAIR DISKUS 100/50 [Suspect]
     Route: 055

REACTIONS (5)
  - ADVERSE EVENT [None]
  - APHAGIA [None]
  - FEELING ABNORMAL [None]
  - HYPERPHAGIA [None]
  - INSOMNIA [None]
